FAERS Safety Report 8069293-6 (Version None)
Quarter: 2012Q1

REPORT INFORMATION
  Report Type: 
  Country: None (occurrence: None)
  Receive Date: 20120125
  Receipt Date: 20120118
  Transmission Date: 20120608
  Serious: Yes (Hospitalization, Other)
  Sender: FDA-Public Use
  Company Number: US-JNJFOC-20110501273

PATIENT
  Sex: Female

DRUGS (5)
  1. LEVAQUIN [Suspect]
     Indication: ENTEROBACTER PNEUMONIA
     Route: 065
  2. ZOSYN [Suspect]
     Indication: ESCHERICHIA INFECTION
     Route: 065
  3. CASPOFUNGIN ACETATE [Suspect]
     Indication: FUNGAL INFECTION
     Route: 065
  4. ZOSYN [Suspect]
     Indication: ENTEROBACTER PNEUMONIA
     Route: 065
  5. VANCOMYCIN [Suspect]
     Indication: PRODUCT USED FOR UNKNOWN INDICATION
     Route: 065

REACTIONS (6)
  - APHONIA [None]
  - NERVE INJURY [None]
  - STEVENS-JOHNSON SYNDROME [None]
  - MULTI-ORGAN FAILURE [None]
  - AMNESIA [None]
  - TOXIC EPIDERMAL NECROLYSIS [None]
